FAERS Safety Report 8777328 (Version 3)
Quarter: 2012Q4

REPORT INFORMATION
  Report Type: 
  Country: PE (occurrence: PE)
  Receive Date: 20120911
  Receipt Date: 20120920
  Transmission Date: 20130627
  Serious: Yes (Other)
  Sender: FDA-Public Use
  Company Number: PE-PFIZER INC-2012222988

PATIENT
  Age: 68 Year
  Sex: Female

DRUGS (2)
  1. XANAX [Suspect]
     Dosage: 0.5 mg, 1x/day
     Route: 048
     Dates: start: 2002, end: 200506
  2. XANAX [Suspect]
     Dosage: UNK
     Route: 048
     Dates: end: 201207

REACTIONS (1)
  - Hepatic fibrosis [Not Recovered/Not Resolved]
